FAERS Safety Report 9596725 (Version 4)
Quarter: 2013Q4

REPORT INFORMATION
  Report Type: Spontaneous
  Country: CN (occurrence: CN)
  Receive Date: 20131004
  Receipt Date: 20131101
  Transmission Date: 20140711
  Serious: Yes (Other)
  Sender: FDA-Public Use
  Company Number: CN-GLAXOSMITHKLINE-B0926061A

PATIENT
  Sex: Male

DRUGS (1)
  1. ZINACEF [Suspect]
     Indication: INFECTION PROPHYLAXIS
     Dosage: 1.5G PER DAY
     Route: 042
     Dates: end: 20130801

REACTIONS (2)
  - Haematuria [Recovered/Resolved]
  - Product quality issue [Unknown]
